FAERS Safety Report 25705953 (Version 1)
Quarter: 2025Q3

REPORT INFORMATION
  Report Type: Spontaneous
  Country: EU (occurrence: EU)
  Receive Date: 20250820
  Receipt Date: 20250820
  Transmission Date: 20251020
  Serious: Yes (Death, Other)
  Sender: NOVARTIS
  Company Number: EU-002147023-NVSC2024FR175599

PATIENT
  Age: 52 Year
  Sex: Female

DRUGS (5)
  1. DABRAFENIB [Suspect]
     Active Substance: DABRAFENIB
     Indication: Lung adenocarcinoma stage IV
     Route: 065
     Dates: start: 202001
  2. DABRAFENIB [Suspect]
     Active Substance: DABRAFENIB
     Indication: BRAF V600E mutation positive
  3. TRAMETINIB [Suspect]
     Active Substance: TRAMETINIB
     Indication: Lung adenocarcinoma stage IV
     Route: 065
     Dates: start: 202001
  4. TRAMETINIB [Suspect]
     Active Substance: TRAMETINIB
     Indication: BRAF V600E mutation positive
  5. OSIMERTINIB [Suspect]
     Active Substance: OSIMERTINIB
     Indication: Lung adenocarcinoma stage IV
     Route: 065
     Dates: start: 202001

REACTIONS (6)
  - General physical health deterioration [Fatal]
  - Lung adenocarcinoma stage IV [Unknown]
  - Metastases to liver [Unknown]
  - Metastases to thorax [Unknown]
  - Malignant neoplasm progression [Unknown]
  - Drug ineffective [Unknown]
